FAERS Safety Report 23056477 (Version 2)
Quarter: 2023Q4

REPORT INFORMATION
  Report Type: Spontaneous
  Country: IT (occurrence: None)
  Receive Date: 20231011
  Receipt Date: 20231018
  Transmission Date: 20240110
  Serious: Yes (Hospitalization)
  Sender: FDA-Public Use
  Company Number: 2023A228714

PATIENT
  Age: 61 Year
  Sex: Female

DRUGS (3)
  1. FULVESTRANT [Suspect]
     Active Substance: FULVESTRANT
     Indication: Breast cancer
     Dosage: DOSAGE: 250 UNITS OF MEASUREMENT: MILLIGRAMS FREQUENCY OF ADMINISTRATION: CYCLIC ROUTE ADMINISTRA...
     Route: 030
  2. DENOSUMAB [Concomitant]
     Active Substance: DENOSUMAB
  3. RIBOCICLIB [Concomitant]
     Active Substance: RIBOCICLIB

REACTIONS (4)
  - Bronchospasm [Recovered/Resolved]
  - Cough [Recovered/Resolved]
  - Erythema [Recovered/Resolved]
  - Vomiting [Recovered/Resolved]

NARRATIVE: CASE EVENT DATE: 20231002
